FAERS Safety Report 5590789-0 (Version None)
Quarter: 2008Q1

REPORT INFORMATION
  Report Type: 
  Country: None (occurrence: None)
  Receive Date: 20080114
  Receipt Date: 20080102
  Transmission Date: 20080703
  Serious: Yes (Other)
  Sender: FDA-Public Use
  Company Number: US-PFIZER INC-2008001473

PATIENT
  Sex: Female
  Weight: 80.7 kg

DRUGS (17)
  1. CHANTIX [Suspect]
     Indication: SMOKING CESSATION THERAPY
     Dates: start: 20071218, end: 20071229
  2. MAGNESIUM [Concomitant]
  3. LISINOPRIL AND HYDROCHLOROTHIAZIDE [Concomitant]
     Indication: HYPERTENSION
  4. PREMARIN [Concomitant]
  5. CELEBREX [Concomitant]
  6. PRILOSEC [Concomitant]
  7. EFFEXOR XR [Concomitant]
     Indication: FIBROMYALGIA
  8. POTASSIUM CHLORIDE [Concomitant]
  9. TOPAMAX [Concomitant]
     Indication: FIBROMYALGIA
  10. CYCLOBENZAPRINE HCL [Concomitant]
     Indication: MUSCLE RELAXANT THERAPY
  11. AMITIZA [Concomitant]
     Indication: IRRITABLE BOWEL SYNDROME
  12. AMBIEN [Concomitant]
     Indication: SLEEP DISORDER
  13. HYDROCODONE [Concomitant]
  14. DRUG, UNSPECIFIED [Concomitant]
     Dates: start: 20071205, end: 20071201
  15. CALCIUM MAGNESIUM ZINC [Concomitant]
  16. ASCORBIC ACID [Concomitant]
  17. ALL OTHER THERAPEUTIC PRODUCTS [Concomitant]

REACTIONS (12)
  - ABDOMINAL DISTENSION [None]
  - ABDOMINAL PAIN UPPER [None]
  - ABNORMAL BEHAVIOUR [None]
  - AGEUSIA [None]
  - ASTHENIA [None]
  - CONSTIPATION [None]
  - DIARRHOEA [None]
  - DYSPEPSIA [None]
  - DYSURIA [None]
  - NAUSEA [None]
  - RETCHING [None]
  - VOMITING IN PREGNANCY [None]
